FAERS Safety Report 14288081 (Version 1)
Quarter: 2017Q4

REPORT INFORMATION
  Report Type: Spontaneous
  Country: ES (occurrence: ES)
  Receive Date: 20171215
  Receipt Date: 20171215
  Transmission Date: 20180321
  Serious: Yes (Other)
  Sender: FDA-Public Use
  Company Number: ES-009507513-1712ESP004940

PATIENT
  Age: 84 Year
  Sex: Female

DRUGS (5)
  1. DEXCHLORPHENIRAMINE MALEATE. [Interacting]
     Active Substance: DEXCHLORPHENIRAMINE MALEATE
     Route: 048
     Dates: start: 20171123, end: 20171123
  2. GABAPENTIN. [Interacting]
     Active Substance: GABAPENTIN
     Dosage: UNK
     Route: 048
     Dates: start: 20171123, end: 20171123
  3. METAMIZOL HEXAL [Interacting]
     Active Substance: METAMIZOLE SODIUM
     Dosage: UNK
     Route: 048
     Dates: start: 20171123, end: 20171123
  4. FUROSEMIDE. [Suspect]
     Active Substance: FUROSEMIDE
     Dosage: UNK
     Route: 048
     Dates: start: 20171123, end: 20171123
  5. MK-9384 [Interacting]
     Active Substance: TRAMADOL HYDROCHLORIDE
     Route: 048
     Dates: start: 20171123, end: 20171123

REACTIONS (4)
  - Wrong patient received medication [Recovered/Resolved]
  - Somnolence [Unknown]
  - Hypotension [Unknown]
  - Fall [Unknown]

NARRATIVE: CASE EVENT DATE: 20171123
